FAERS Safety Report 7956490-0 (Version None)
Quarter: 2011Q4

REPORT INFORMATION
  Report Type: 
  Country: None (occurrence: None)
  Receive Date: 20111205
  Receipt Date: 20111130
  Transmission Date: 20120403
  Serious: Yes (Hospitalization)
  Sender: FDA-Public Use
  Company Number: US-VERTEX PHARMACEUTICALS INC.-AE-2011-003222

PATIENT
  Sex: Male

DRUGS (4)
  1. PEGASYS [Concomitant]
     Indication: HEPATITIS C
     Dates: start: 20110828, end: 20111107
  2. INCIVEK [Suspect]
     Indication: HEPATITIS C
     Route: 048
     Dates: start: 20110828, end: 20111107
  3. FUROSEMIDE [Concomitant]
  4. RIBAVIRIN [Concomitant]
     Indication: HEPATITIS C
     Dates: start: 20110828, end: 20111107

REACTIONS (7)
  - SEPSIS [None]
  - SCROTAL SWELLING [None]
  - ANAEMIA [None]
  - LYMPHOEDEMA [None]
  - CELLULITIS [None]
  - PYREXIA [None]
  - NEUTROPENIA [None]
